FAERS Safety Report 6540643-2 (Version None)
Quarter: 2010Q1

REPORT INFORMATION
  Report Type: 
  Country: None (occurrence: None)
  Receive Date: 20100118
  Receipt Date: 20100108
  Transmission Date: 20100710
  Serious: Yes (Life-Threatening, Hospitalization)
  Sender: FDA-Public Use
  Company Number: FR-ROCHE-678688

PATIENT
  Sex: Female

DRUGS (2)
  1. KYTRIL [Suspect]
     Indication: DRUG USE FOR UNKNOWN INDICATION
     Dosage: FREQUENCY: ACCORDING TO THE CYCLE
     Route: 048
     Dates: start: 20090710, end: 20091021
  2. GEMZAR [Suspect]
     Indication: ADENOCARCINOMA
     Dosage: FREQUENCY: ACCORDING TO THE CYCLE, 3 WEEKS PER 4; DOSE: 1000 MG/M2
     Route: 042
     Dates: start: 20090710, end: 20091021

REACTIONS (2)
  - CARDIO-RESPIRATORY ARREST [None]
  - VOMITING [None]
